FAERS Safety Report 21365296 (Version 1)
Quarter: 2022Q3

REPORT INFORMATION
  Report Type: Spontaneous
  Country: JP (occurrence: JP)
  Receive Date: 20220922
  Receipt Date: 20220922
  Transmission Date: 20221026
  Serious: Yes (Other)
  Sender: FDA-Public Use
  Company Number: JP-MSNLABS-2022MSNLIT01100

PATIENT

DRUGS (7)
  1. PREGABALIN [Suspect]
     Active Substance: PREGABALIN
     Indication: Trigeminal neuralgia
     Dosage: 450 MG DAILY
     Route: 065
  2. PREGABALIN [Suspect]
     Active Substance: PREGABALIN
     Indication: Glossopharyngeal neuralgia
  3. DULOXETINE [Suspect]
     Active Substance: DULOXETINE
     Indication: Glossopharyngeal neuralgia
     Dosage: 60 MG DAILY
     Route: 065
  4. DULOXETINE [Suspect]
     Active Substance: DULOXETINE
     Indication: Trigeminal neuralgia
  5. TRAMADOL [Suspect]
     Active Substance: TRAMADOL
     Indication: Glossopharyngeal neuralgia
     Dosage: 300 MG DAILY
     Route: 065
  6. TRAMADOL [Suspect]
     Active Substance: TRAMADOL
     Indication: Trigeminal neuralgia
  7. CARBAMAZEPINE [Suspect]
     Active Substance: CARBAMAZEPINE
     Indication: Glossopharyngeal neuralgia
     Dosage: 800 MG DAILY
     Route: 065

REACTIONS (1)
  - Drug ineffective [Unknown]
